FAERS Safety Report 5415550-9 (Version None)
Quarter: 2007Q3

REPORT INFORMATION
  Report Type: 
  Country: None (occurrence: None)
  Receive Date: 20070815
  Receipt Date: 20070808
  Transmission Date: 20080115
  Serious: Yes (Life-Threatening, Hospitalization)
  Sender: FDA-Public Use
  Company Number: B0482618A

PATIENT
  Sex: Female
  Weight: 3 kg

DRUGS (4)
  1. COMBIVIR [Suspect]
     Indication: HIV INFECTION
     Dates: start: 20061010, end: 20070704
  2. RETROVIR [Suspect]
     Indication: ANTIVIRAL PROPHYLAXIS
     Dates: start: 20070704, end: 20070704
  3. KALETRA [Suspect]
     Indication: HIV INFECTION
     Dates: start: 20061101, end: 20070704
  4. SUSTIVA [Concomitant]
     Indication: HIV INFECTION
     Dates: end: 20061101

REACTIONS (10)
  - ANOXIA [None]
  - APPARENT LIFE THREATENING EVENT [None]
  - BLOOD LACTIC ACID INCREASED [None]
  - DRUG EXPOSURE DURING PREGNANCY [None]
  - ENCEPHALOPATHY [None]
  - FOETAL DISTRESS SYNDROME [None]
  - FOETAL HEART RATE ABNORMAL [None]
  - HAEMODYNAMIC TEST ABNORMAL [None]
  - MICROCEPHALY [None]
  - MULTI-ORGAN FAILURE [None]
